FAERS Safety Report 12526523 (Version 4)
Quarter: 2018Q3

REPORT INFORMATION
  Report Type: Spontaneous
  Country: JP (occurrence: JP)
  Receive Date: 20160705
  Receipt Date: 20180730
  Transmission Date: 20181010
  Serious: Yes (Hospitalization)
  Sender: FDA-Public Use
  Company Number: JP-ACTELION-A-CH2012-67937

PATIENT
  Age: 13 Year
  Sex: Male

DRUGS (25)
  1. BRAZAVES [Suspect]
     Active Substance: MIGLUSTAT
     Dosage: 200 MG, BID
     Route: 048
     Dates: start: 20170710, end: 20171225
  2. DIAZEPAM. [Concomitant]
     Active Substance: DIAZEPAM
  3. BRAZAVES [Suspect]
     Active Substance: MIGLUSTAT
     Dosage: 100 MG, TID
     Route: 048
     Dates: start: 20160524, end: 20160605
  4. MYSTAN [Concomitant]
     Active Substance: CLOBAZAM
  5. TOPINA [Concomitant]
     Active Substance: TOPIRAMATE
  6. BRAZAVES [Suspect]
     Active Substance: MIGLUSTAT
     Indication: NIEMANN-PICK DISEASE
     Dosage: 100 MG, TID
     Route: 048
     Dates: start: 20120621, end: 20121022
  7. BRAZAVES [Suspect]
     Active Substance: MIGLUSTAT
     Dosage: 100 MG, BID
     Route: 048
     Dates: start: 20160517, end: 20160523
  8. FYCOMPA [Concomitant]
     Active Substance: PERAMPANEL
  9. BRAZAVES [Suspect]
     Active Substance: MIGLUSTAT
     Dosage: 100 MG, BID
     Route: 048
     Dates: start: 20121023, end: 20140709
  10. ANAFRANIL [Concomitant]
     Active Substance: CLOMIPRAMINE HYDROCHLORIDE
  11. DIAPP [Concomitant]
     Active Substance: DIAZEPAM
  12. ALEVIATIN [Concomitant]
     Active Substance: PHENYTOIN SODIUM
  13. ALFACALCIDOL [Concomitant]
     Active Substance: ALFACALCIDOL
  14. BRAZAVES [Suspect]
     Active Substance: MIGLUSTAT
     Dosage: 200 MG, BID
     Route: 048
     Dates: start: 20150318, end: 20160304
  15. BRAZAVES [Suspect]
     Active Substance: MIGLUSTAT
     Dosage: 200 MG, BID
     Route: 048
     Dates: start: 20160606, end: 20170522
  16. EXCEGRAN [Concomitant]
     Active Substance: ZONISAMIDE
  17. ONON [Concomitant]
     Active Substance: PRANLUKAST
     Dosage: UNK
  18. PHENOBARBITAL. [Concomitant]
     Active Substance: PHENOBARBITAL
  19. E KEPPRA [Concomitant]
     Active Substance: LEVETIRACETAM
  20. BRAZAVES [Suspect]
     Active Substance: MIGLUSTAT
     Dosage: 100 MG, TID
     Route: 048
     Dates: start: 20140710, end: 20150317
  21. BRAZAVES [Suspect]
     Active Substance: MIGLUSTAT
     Dosage: 100 MG, BID
     Route: 048
     Dates: start: 20170703, end: 20170709
  22. VIMPAT [Concomitant]
     Active Substance: LACOSAMIDE
  23. DEPAKENE [Concomitant]
     Active Substance: VALPROIC ACID
  24. BRAZAVES [Suspect]
     Active Substance: MIGLUSTAT
     Dosage: 100 MG, QD
     Route: 048
     Dates: start: 20160510, end: 20160516
  25. BRAZAVES [Suspect]
     Active Substance: MIGLUSTAT
     Dosage: 100 MG, BID
     Route: 048
     Dates: start: 20171226

REACTIONS (5)
  - Gastroenteritis [Recovering/Resolving]
  - Bronchitis [Recovered/Resolved]
  - Diarrhoea [Recovering/Resolving]
  - Constipation [Recovering/Resolving]
  - Malnutrition [Recovering/Resolving]

NARRATIVE: CASE EVENT DATE: 20120622
